FAERS Safety Report 6732086-3 (Version None)
Quarter: 2010Q2

REPORT INFORMATION
  Report Type: 
  Country: None (occurrence: None)
  Receive Date: 20100519
  Receipt Date: 20100421
  Transmission Date: 20101027
  Serious: Yes (Disabling)
  Sender: FDA-Public Use
  Company Number: US-BAXTER-2010BH010790

PATIENT

DRUGS (1)
  1. ANTIHEMOPHILIC FACTOR (HUMAN) [Suspect]
     Indication: HAEMOPHILIA
     Route: 065

REACTIONS (4)
  - ANKLE FRACTURE [None]
  - ARTHRITIS [None]
  - CYST [None]
  - SYNOVITIS [None]
